FAERS Safety Report 12274500 (Version 1)
Quarter: 2016Q2

REPORT INFORMATION
  Report Type: Spontaneous
  Country: US (occurrence: US)
  Receive Date: 20160415
  Receipt Date: 20160415
  Transmission Date: 20160815
  Serious: No
  Sender: FDA-Public Use
  Company Number: US-ALLERGAN-1514660US

PATIENT
  Sex: Female

DRUGS (3)
  1. PILOCARPINE. [Concomitant]
     Active Substance: PILOCARPINE
     Indication: GLAUCOMA
     Dosage: UNK UNK, Q6HR
     Route: 047
  2. LUMIGAN [Suspect]
     Active Substance: BIMATOPROST
     Indication: GLAUCOMA
     Dosage: 1 GTT, QHS
     Route: 047
     Dates: start: 2005
  3. TIMOLOL MALEATE. [Concomitant]
     Active Substance: TIMOLOL MALEATE
     Indication: GLAUCOMA
     Route: 047

REACTIONS (1)
  - Psoriasis [Not Recovered/Not Resolved]

NARRATIVE: CASE EVENT DATE: 2015
